FAERS Safety Report 8218795-8 (Version None)
Quarter: 2012Q1

REPORT INFORMATION
  Report Type: 
  Country: None (occurrence: None)
  Receive Date: 20120307
  Receipt Date: 20100615
  Transmission Date: 20120608
  Serious: Yes (Other)
  Sender: FDA-Public Use
  Company Number: PHHY2010US34065

PATIENT
  Age: 56 Year
  Sex: Male
  Weight: 64.9 kg

DRUGS (7)
  1. MULTIVITAMINS (ASCORBIC ACID, ERGOCALCIFEROL, FOLIC ACID, NICOTINAMIDE [Concomitant]
  2. SIMVASTATIN [Concomitant]
  3. PRILOSEC [Concomitant]
  4. AFINITOR [Suspect]
     Indication: RENAL CELL CARCINOMA
     Dosage: 10 MG, QD, ORAL
     Route: 048
     Dates: start: 20100220, end: 20100427
  5. ASPIRIN [Concomitant]
  6. ACETAMINOPHEN [Concomitant]
  7. NORVASC [Concomitant]

REACTIONS (2)
  - NEOPLASM MALIGNANT [None]
  - PALPITATIONS [None]
